FAERS Safety Report 11755576 (Version 1)
Quarter: 2015Q4

REPORT INFORMATION
  Report Type: Spontaneous
  Country: US (occurrence: US)
  Receive Date: 20151119
  Receipt Date: 20151119
  Transmission Date: 20160304
  Serious: No
  Sender: FDA-Public Use
  Company Number: US-PFIZER INC-2015399059

PATIENT
  Age: 69 Year
  Sex: Male
  Weight: 95.25 kg

DRUGS (6)
  1. LATANOPROST. [Suspect]
     Active Substance: LATANOPROST
     Indication: GLAUCOMA
     Dosage: UNK UNK, 2X/DAY
  2. AMLODIPINE [Concomitant]
     Active Substance: AMLODIPINE BESYLATE
     Indication: HYPERTENSION
     Dosage: UNK
  3. TERAZOSIN [Concomitant]
     Active Substance: TERAZOSIN\TERAZOSIN HYDROCHLORIDE
     Indication: PROSTATOMEGALY
     Dosage: UNK
  4. LATANOPROST. [Suspect]
     Active Substance: LATANOPROST
     Indication: VISION BLURRED
     Dosage: 1 GTT, 1X/DAY (ONE DROP IN EACH EYE AT NIGHT TIME)
  5. DORZOLAMIDE [Suspect]
     Active Substance: DORZOLAMIDE
     Indication: VISION BLURRED
  6. DORZOLAMIDE [Suspect]
     Active Substance: DORZOLAMIDE
     Indication: GLAUCOMA
     Dosage: 1 GTT, 1X/DAY (ONE DROP IN EACH EYE AT NIGHT TIME)

REACTIONS (3)
  - Product quality issue [Unknown]
  - Product use issue [Unknown]
  - Eye disorder [Unknown]
